FAERS Safety Report 5394503-3 (Version None)
Quarter: 2007Q3

REPORT INFORMATION
  Report Type: 
  Country: None (occurrence: None)
  Receive Date: 20070723
  Receipt Date: 20070716
  Transmission Date: 20080115
  Serious: Yes (Other)
  Sender: FDA-Public Use
  Company Number: US-ASTRAZENECA-2007UW17015

PATIENT
  Age: 80 Year
  Sex: Male

DRUGS (4)
  1. CRESTOR [Suspect]
     Route: 048
  2. ASPIRIN [Concomitant]
  3. COZAAR [Concomitant]
  4. ACUVITE [Concomitant]

REACTIONS (2)
  - ABASIA [None]
  - MYALGIA [None]
